FAERS Safety Report 14033024 (Version 1)
Quarter: 2017Q4

REPORT INFORMATION
  Report Type: Report from Study
  Country: None (occurrence: US)
  Receive Date: 20171003
  Receipt Date: 20171003
  Transmission Date: 20180321
  Serious: Yes (Other)
  Sender: FDA-Public Use
  Company Number: US-ABBVIE-17K-163-2103077-00

PATIENT
  Sex: Female
  Weight: 63.56 kg

DRUGS (3)
  1. HUMIRA [Suspect]
     Active Substance: ADALIMUMAB
     Indication: CROHN^S DISEASE
     Route: 058
     Dates: start: 201308, end: 201504
  2. DIAZEPAM. [Concomitant]
     Active Substance: DIAZEPAM
     Indication: OESOPHAGEAL SPASM
  3. HYDROCODONE [Concomitant]
     Active Substance: HYDROCODONE
     Indication: CROHN^S DISEASE

REACTIONS (2)
  - Oesophageal spasm [Unknown]
  - Exposure during pregnancy [Unknown]
